FAERS Safety Report 7236777-X (Version None)
Quarter: 2011Q1

REPORT INFORMATION
  Report Type: 
  Country: None (occurrence: None)
  Receive Date: 20110120
  Receipt Date: 20110110
  Transmission Date: 20110831
  Serious: No
  Sender: FDA-Public Use
  Company Number: US-B.I. PHARMACEUTICALS,INC./RIDGEFIELD-2010-BP-13765BP

PATIENT
  Sex: Male

DRUGS (14)
  1. VITAMIN E [Concomitant]
  2. PRADAXA [Suspect]
     Indication: ATRIAL FLUTTER
     Dosage: 300 MG
     Route: 048
     Dates: start: 20101203, end: 20110110
  3. NORVASC [Concomitant]
     Indication: HYPERTENSION
  4. GABAPENTIN [Concomitant]
     Dosage: 1200 MG
  5. VITMAIN D [Concomitant]
  6. FISH OIL [Concomitant]
     Dosage: 2400 MG
  7. MULTI-VITAMIN [Concomitant]
  8. PRADAXA [Suspect]
     Indication: ATRIAL FIBRILLATION
     Dosage: 300 MG
     Route: 048
     Dates: start: 20101122, end: 20101125
  9. KLOR-CON [Concomitant]
  10. BENICAR [Concomitant]
  11. ASA [Concomitant]
  12. SOTALOL [Concomitant]
  13. FUROSEMIDE [Concomitant]
  14. LOVASTATIN [Concomitant]

REACTIONS (4)
  - DYSPEPSIA [None]
  - ABDOMINAL DISCOMFORT [None]
  - VERTIGO [None]
  - DIZZINESS [None]
